FAERS Safety Report 4960988-7 (Version None)
Quarter: 2006Q2

REPORT INFORMATION
  Report Type: 
  Country: None (occurrence: None)
  Receive Date: 20060403
  Receipt Date: 20060323
  Transmission Date: 20061013
  Serious: Yes (Hospitalization)
  Sender: FDA-Public Use
  Company Number: US-JNJFOC-20060307212

PATIENT
  Sex: Female
  Weight: 93.44 kg

DRUGS (11)
  1. DURAGESIC-100 [Suspect]
     Route: 062
  2. DURAGESIC-100 [Suspect]
     Route: 062
  3. ELAVIL [Concomitant]
     Indication: SLEEP DISORDER
     Route: 048
  4. BUSPAR [Concomitant]
     Indication: SLEEP DISORDER
     Route: 048
  5. KETEK [Concomitant]
     Indication: LUNG INFECTION
     Route: 048
  6. PREDNISONE [Concomitant]
     Route: 048
  7. SEREVENT [Concomitant]
     Route: 055
  8. NOVOLIN N [Concomitant]
     Dosage: 60 UNITS A.M., 40 UNITS P.M., SUBCUTANEOUS
     Route: 058
  9. PROTONIX [Concomitant]
     Indication: GASTROINTESTINAL DISORDER
     Route: 048
  10. NORFLEX [Concomitant]
     Indication: BACK PAIN
     Route: 048
  11. ULTRACET [Concomitant]
     Indication: PAIN
     Route: 048

REACTIONS (4)
  - CHRONIC OBSTRUCTIVE PULMONARY DISEASE [None]
  - DRUG ADMINISTRATION ERROR [None]
  - NAUSEA [None]
  - VOMITING [None]
